FAERS Safety Report 22063578 (Version 5)
Quarter: 2025Q3

REPORT INFORMATION
  Report Type: Report from Study
  Country: ZA (occurrence: ZA)
  Receive Date: 20230306
  Receipt Date: 20250909
  Transmission Date: 20251021
  Serious: Yes (Other)
  Sender: ROCHE
  Company Number: ZA-ROCHE-3296657

PATIENT
  Age: 24 Year
  Sex: Male

DRUGS (2)
  1. OCREVUS [Suspect]
     Active Substance: OCRELIZUMAB
     Indication: Relapsing multiple sclerosis
     Dosage: THEREAFTER 600MG EVERY 6 MONTHS,
     Route: 042
     Dates: start: 20210906
  2. OCREVUS [Suspect]
     Active Substance: OCRELIZUMAB
     Route: 042

REACTIONS (4)
  - Magnetic resonance imaging head abnormal [Unknown]
  - Optic atrophy [Unknown]
  - Paranasal cyst [Unknown]
  - Multiple sclerosis [Unknown]
